FAERS Safety Report 5116900-3 (Version None)
Quarter: 2006Q3

REPORT INFORMATION
  Report Type: 
  Country: None (occurrence: None)
  Receive Date: 20060925
  Receipt Date: 20060912
  Transmission Date: 20061208
  Serious: Yes (Other)
  Sender: FDA-Public Use
  Company Number: 14689

PATIENT
  Age: 40 Year
  Sex: Male

DRUGS (1)
  1. AMIODARONE HCL [Suspect]
     Indication: CONGESTIVE CARDIOMYOPATHY

REACTIONS (10)
  - BULIMIA NERVOSA [None]
  - CARDIAC MURMUR [None]
  - HYPERTHYROIDISM [None]
  - OEDEMA PERIPHERAL [None]
  - PALPITATIONS [None]
  - THERAPY NON-RESPONDER [None]
  - THYROIDITIS [None]
  - THYROXINE DECREASED [None]
  - TREMOR [None]
  - WEIGHT INCREASED [None]
